FAERS Safety Report 9458878 (Version 1)
Quarter: 2013Q3

REPORT INFORMATION
  Report Type: Spontaneous
  Country: US (occurrence: None)
  Receive Date: 20130812
  Receipt Date: 20130812
  Transmission Date: 20140515
  Serious: Yes (Other)
  Sender: FDA-Public Use
  Company Number: 2013P1015861

PATIENT
  Age: 26 Year
  Sex: Female

DRUGS (2)
  1. SULFAMETHOXAZOLE AND TRIMETHOPRIM [Suspect]
     Indication: KLEBSIELLA INFECTION
  2. SULFAMETHOXAZOLE AND TRIMETHOPRIM [Suspect]
     Indication: URINARY TRACT INFECTION

REACTIONS (5)
  - Abdominal pain [None]
  - Fatigue [None]
  - Microangiopathic haemolytic anaemia [None]
  - Thrombotic thrombocytopenic purpura [None]
  - Von Willebrand^s factor activity abnormal [None]
